FAERS Safety Report 10379511 (Version 2)
Quarter: 2014Q3

REPORT INFORMATION
  Report Type: Spontaneous
  Country: US (occurrence: US)
  Receive Date: 20140812
  Receipt Date: 20140904
  Transmission Date: 20150326
  Serious: Yes (Hospitalization, Other)
  Sender: FDA-Public Use
  Company Number: US-009507513-1408USA003605

PATIENT
  Sex: Female
  Weight: 100.2 kg

DRUGS (1)
  1. NUVARING [Suspect]
     Active Substance: ETHINYL ESTRADIOL\ETONOGESTREL
     Indication: CONTRACEPTION
     Dosage: UNK
     Route: 067
     Dates: start: 20130703, end: 20131204

REACTIONS (7)
  - Cholecystectomy [Unknown]
  - Chronic obstructive pulmonary disease [Not Recovered/Not Resolved]
  - Peptic ulcer [Unknown]
  - Migraine [Unknown]
  - Emphysema [Unknown]
  - Pulmonary embolism [Unknown]
  - Coronary artery disease [Unknown]

NARRATIVE: CASE EVENT DATE: 20131211
